FAERS Safety Report 12503464 (Version 2)
Quarter: 2016Q3

REPORT INFORMATION
  Report Type: Spontaneous
  Country: US (occurrence: US)
  Receive Date: 20160628
  Receipt Date: 20160801
  Transmission Date: 20161109
  Serious: No
  Sender: FDA-Public Use
  Company Number: US-PFIZER INC-2016284066

PATIENT
  Age: 18 Year
  Sex: Female
  Weight: 68.98 kg

DRUGS (2)
  1. BUPIVACAINE HCL [Suspect]
     Active Substance: BUPIVACAINE HYDROCHLORIDE
     Indication: EPIDURAL ANAESTHESIA
     Dosage: 20 ML, (0.25% 30ML VIAL) UNK
  2. BUPIVACAINE HCL [Suspect]
     Active Substance: BUPIVACAINE HYDROCHLORIDE
     Dosage: AROUND 20 ML OF 2.5 MG/ML OF BUPIVACAINE SOLUTION, SINGLE
     Route: 008
     Dates: start: 20160513

REACTIONS (1)
  - Drug ineffective [Unknown]
